FAERS Safety Report 4269408-1 (Version None)
Quarter: 2004Q1

REPORT INFORMATION
  Report Type: 
  Country: None (occurrence: None)
  Receive Date: 20040112
  Receipt Date: 20040112
  Transmission Date: 20041129
  Serious: Yes (Hospitalization)
  Sender: FDA-Public Use
  Company Number: None

PATIENT
  Age: 82 Year
  Sex: Male

DRUGS (10)
  1. DILTIAZEM [Suspect]
     Dosage: 90 TID
  2. METOPROLOL [Suspect]
     Dosage: 50 BID
  3. ASPIRIN [Concomitant]
  4. SIMVASTATIN [Concomitant]
  5. TRIAMONOLONE [Concomitant]
  6. CLONIDINE [Concomitant]
  7. DIGOXIN [Concomitant]
  8. GLIPIZIDE [Concomitant]
  9. INSULIN [Concomitant]
  10. ISGREL [Concomitant]

REACTIONS (2)
  - BRADYCARDIA [None]
  - OEDEMA [None]
